FAERS Safety Report 24896047 (Version 1)
Quarter: 2025Q1

REPORT INFORMATION
  Report Type: Spontaneous
  Country: US (occurrence: US)
  Receive Date: 20250128
  Receipt Date: 20250128
  Transmission Date: 20250409
  Serious: Yes (Other)
  Sender: DR REDDYS
  Company Number: US-DRL-USA-USA/2025/01/001176

PATIENT
  Age: 26 Year
  Sex: Female

DRUGS (2)
  1. METOPROLOL [Suspect]
     Active Substance: METOPROLOL
     Indication: Inappropriate sinus tachycardia
  2. IVABRADINE [Suspect]
     Active Substance: IVABRADINE
     Indication: Inappropriate sinus tachycardia

REACTIONS (2)
  - Visual impairment [Unknown]
  - Drug ineffective for unapproved indication [Unknown]
